FAERS Safety Report 25356338 (Version 2)
Quarter: 2025Q2

REPORT INFORMATION
  Report Type: Report from Study
  Country: US (occurrence: US)
  Receive Date: 20250526
  Receipt Date: 20250618
  Transmission Date: 20250717
  Serious: Yes (Death, Other)
  Sender: ACADIA PHARMACEUTICALS
  Company Number: US-ACADIA PHARMACEUTICALS INC.-ACA-2025-PIM-006203

PATIENT
  Age: 89 Year
  Sex: Male

DRUGS (18)
  1. NUPLAZID [Suspect]
     Active Substance: PIMAVANSERIN TARTRATE
     Indication: Parkinson^s disease
     Dosage: 34 MILLIGRAM, QOD
     Route: 048
     Dates: start: 20230303, end: 20250515
  2. LANTUS [Concomitant]
     Active Substance: INSULIN GLARGINE
  3. HUMALOG [Concomitant]
     Active Substance: INSULIN LISPRO
     Dates: end: 20250515
  4. ATORVASTATIN [Concomitant]
     Active Substance: ATORVASTATIN
  5. ASPIRIN [Concomitant]
     Active Substance: ASPIRIN
     Dates: end: 20250515
  6. LOSARTAN [Concomitant]
     Active Substance: LOSARTAN
     Dates: end: 20250515
  7. LATANOPROST [Concomitant]
     Active Substance: LATANOPROST
  8. FERROUS SULFATE [Concomitant]
     Active Substance: FERROUS SULFATE
  9. PANTOPRAZOLE [Concomitant]
     Active Substance: PANTOPRAZOLE
  10. DONEPEZIL [Concomitant]
     Active Substance: DONEPEZIL
  11. LASIX [Concomitant]
     Active Substance: FUROSEMIDE
  12. HYDRALAZINE [Concomitant]
     Active Substance: HYDRALAZINE HYDROCHLORIDE
     Dates: end: 20250515
  13. CHOLECALCIFEROL [Concomitant]
     Active Substance: CHOLECALCIFEROL
  14. LIPITOR [Concomitant]
     Active Substance: ATORVASTATIN CALCIUM
     Dates: end: 20250515
  15. PLAVIX [Concomitant]
     Active Substance: CLOPIDOGREL BISULFATE
     Dates: end: 20250515
  16. KEPPRA [Concomitant]
     Active Substance: LEVETIRACETAM
     Dates: end: 20250515
  17. MIRTAZAPINE [Concomitant]
     Active Substance: MIRTAZAPINE
     Dates: end: 20250515
  18. NIFEDIPINE [Concomitant]
     Active Substance: NIFEDIPINE
     Dates: end: 20250515

REACTIONS (3)
  - Cerebrovascular accident [Fatal]
  - Post stroke seizure [Fatal]
  - Incorrect dose administered [Unknown]

NARRATIVE: CASE EVENT DATE: 20250503
